FAERS Safety Report 18898817 (Version 2)
Quarter: 2021Q1

REPORT INFORMATION
  Report Type: Report from Study
  Country: ES (occurrence: ES)
  Receive Date: 20210216
  Receipt Date: 20210223
  Transmission Date: 20210420
  Serious: Yes (Hospitalization, Other)
  Sender: FDA-Public Use
  Company Number: ES-UCBSA-2021006003

PATIENT
  Sex: Female
  Weight: 85 kg

DRUGS (2)
  1. CERTOLIZUMAB PEGOL [Suspect]
     Active Substance: CERTOLIZUMAB PEGOL
     Indication: PSORIASIS
     Dosage: 400 MILLIGRAM, EV 15 DAYS
     Dates: start: 20210120
  2. ETANERCEPT [Concomitant]
     Active Substance: ETANERCEPT
     Indication: PRODUCT USED FOR UNKNOWN INDICATION
     Dosage: 25 MILLIGRAM
     Dates: start: 20151116, end: 20210111

REACTIONS (6)
  - Musculoskeletal pain [Recovered/Resolved with Sequelae]
  - SARS-CoV-2 test negative [Unknown]
  - Fibrin D dimer increased [Not Recovered/Not Resolved]
  - Dyspnoea [Recovered/Resolved with Sequelae]
  - Asthenia [Recovered/Resolved with Sequelae]
  - Urticaria [Recovered/Resolved with Sequelae]

NARRATIVE: CASE EVENT DATE: 20210131
